FAERS Safety Report 16638737 (Version 2)
Quarter: 2019Q3

REPORT INFORMATION
  Report Type: Report from Study
  Country: BR (occurrence: BR)
  Receive Date: 20190726
  Receipt Date: 20190814
  Transmission Date: 20191004
  Serious: Yes (Other)
  Sender: FDA-Public Use
  Company Number: PHHY2019BR170659

PATIENT
  Sex: Male

DRUGS (3)
  1. COSENTYX [Suspect]
     Active Substance: SECUKINUMAB
     Dosage: UNK
     Route: 065
     Dates: start: 20190718
  2. COSENTYX [Suspect]
     Active Substance: SECUKINUMAB
     Dosage: UNK
     Route: 065
  3. COSENTYX [Suspect]
     Active Substance: SECUKINUMAB
     Indication: PRODUCT USED FOR UNKNOWN INDICATION
     Dosage: UNK
     Route: 065
     Dates: start: 201904

REACTIONS (17)
  - Drug ineffective [Unknown]
  - Hypersensitivity [Recovering/Resolving]
  - Wound [Unknown]
  - Oropharyngeal pain [Unknown]
  - Concomitant disease aggravated [Unknown]
  - Eating disorder [Unknown]
  - Pain [Not Recovered/Not Resolved]
  - Aphthous ulcer [Recovering/Resolving]
  - Oral discomfort [Unknown]
  - Hypertension [Unknown]
  - Erythema [Unknown]
  - Arthralgia [Unknown]
  - Drug-induced liver injury [Unknown]
  - Joint swelling [Unknown]
  - Lip swelling [Recovering/Resolving]
  - Swelling face [Recovering/Resolving]
  - Gait disturbance [Unknown]
